FAERS Safety Report 16013449 (Version 1)
Quarter: 2019Q1

REPORT INFORMATION
  Report Type: Spontaneous
  Country: US (occurrence: US)
  Receive Date: 20190227
  Receipt Date: 20190227
  Transmission Date: 20190418
  Serious: Yes (Other)
  Sender: FDA-Public Use
  Company Number: US-PFIZER INC-2016547943

PATIENT
  Sex: Male
  Weight: 98.88 kg

DRUGS (11)
  1. VIAGRA [Suspect]
     Active Substance: SILDENAFIL CITRATE
     Indication: ERECTILE DYSFUNCTION
     Dosage: UNK
     Route: 048
  2. LEVOTHYROXINE SODIUM. [Concomitant]
     Active Substance: LEVOTHYROXINE SODIUM
     Dosage: 50 UG, DAILY
     Route: 048
     Dates: start: 20160322
  3. VIAGRA [Suspect]
     Active Substance: SILDENAFIL CITRATE
     Dosage: 100 MG, AS NEEDED
     Route: 048
  4. HYDROCODONE-ACETAMINOPHEN [Concomitant]
     Active Substance: ACETAMINOPHEN\HYDROCODONE
     Indication: PAIN
     Dosage: UNK, AS NEEDED [HYDROCODONE: 5 MG] /, [PARACETAMOL: 325 MG] AT ONE TABLET EVERY 8 HOURS
     Route: 048
  5. VIAGRA [Suspect]
     Active Substance: SILDENAFIL CITRATE
     Dosage: 100 MG, DAILY
     Route: 048
     Dates: start: 20140624
  6. PROAIR HFA [Concomitant]
     Active Substance: ALBUTEROL SULFATE
     Indication: TOBACCO ABUSE
     Dosage: UNK, AS NEEDED (108 (90 BASC) MCG/ACT, 2 (TWO) PUFF(S) PUFF(S) Q 4 HOURS PRN, 1 INHALER)
     Dates: start: 20160420
  7. PRILOSEC [Concomitant]
     Active Substance: OMEPRAZOLE MAGNESIUM
     Indication: DYSPEPSIA
     Dosage: 40 MG, 2X/DAY
     Dates: start: 20151217
  8. LORAZEPAM. [Concomitant]
     Active Substance: LORAZEPAM
     Dosage: 1 MG, AS NEEDED (1MG, 1 TABLET DAILY PRN)
     Dates: start: 20161116
  9. ASPIRIN. [Concomitant]
     Active Substance: ASPIRIN
     Dosage: 1 MG, DAILY
     Route: 048
  10. BYSTOLIC [Concomitant]
     Active Substance: NEBIVOLOL HYDROCHLORIDE
     Indication: CORONARY ARTERY DISEASE
     Dosage: 5 MG, DAILY
     Dates: start: 20150924
  11. LISINOPRIL. [Concomitant]
     Active Substance: LISINOPRIL
     Indication: BLOOD PRESSURE MEASUREMENT
     Dosage: 10 MG, 1X/DAY
     Route: 048

REACTIONS (9)
  - Drug ineffective [Not Recovered/Not Resolved]
  - Weight decreased [Unknown]
  - Vertigo [Unknown]
  - Back disorder [Unknown]
  - Limb discomfort [Not Recovered/Not Resolved]
  - Nerve compression [Unknown]
  - Thrombosis [Unknown]
  - Headache [Not Recovered/Not Resolved]
  - Vision blurred [Not Recovered/Not Resolved]
